FAERS Safety Report 13853521 (Version 3)
Quarter: 2017Q4

REPORT INFORMATION
  Report Type: Report from Study
  Country: US (occurrence: US)
  Receive Date: 20170809
  Receipt Date: 20171019
  Transmission Date: 20180320
  Serious: Yes (Hospitalization)
  Sender: FDA-Public Use
  Company Number: US-JNJFOC-20170807095

PATIENT
  Sex: Female

DRUGS (2)
  1. STELARA [Suspect]
     Active Substance: USTEKINUMAB
     Indication: CROHN^S DISEASE
     Route: 058
     Dates: start: 20170628
  2. STELARA [Suspect]
     Active Substance: USTEKINUMAB
     Indication: CROHN^S DISEASE
     Dosage: IV DOSE
     Route: 058
     Dates: start: 20170503

REACTIONS (5)
  - Spinal column injury [Unknown]
  - Fall [Unknown]
  - Hyperhidrosis [Unknown]
  - Crohn^s disease [Unknown]
  - Infection [Unknown]

NARRATIVE: CASE EVENT DATE: 20170803
